FAERS Safety Report 25394709 (Version 1)
Quarter: 2025Q2

REPORT INFORMATION
  Report Type: Spontaneous
  Country: US (occurrence: US)
  Receive Date: 20250604
  Receipt Date: 20250604
  Transmission Date: 20250717
  Serious: Yes (Other)
  Sender: AUROBINDO
  Company Number: US-AUROBINDO-AUR-APL-2025-027850

PATIENT
  Age: 57 Year
  Sex: Male

DRUGS (12)
  1. CARBOPLATIN [Suspect]
     Active Substance: CARBOPLATIN
     Indication: Pancreatic neuroendocrine tumour
     Route: 065
  2. OXALIPLATIN [Suspect]
     Active Substance: OXALIPLATIN
     Indication: Pancreatic neuroendocrine tumour
     Route: 065
  3. FLUOROURACIL [Suspect]
     Active Substance: FLUOROURACIL
     Indication: Pancreatic neuroendocrine tumour
     Route: 065
  4. GEMCITABINE [Suspect]
     Active Substance: GEMCITABINE
     Indication: Pancreatic neuroendocrine tumour
     Route: 065
  5. LEUCOVORIN [Suspect]
     Active Substance: LEUCOVORIN\LEUCOVORIN CALCIUM
     Indication: Pancreatic neuroendocrine tumour
     Route: 065
  6. ETOPOSIDE [Suspect]
     Active Substance: ETOPOSIDE
     Indication: Pancreatic neuroendocrine tumour
     Route: 065
  7. IPILIMUMAB [Suspect]
     Active Substance: IPILIMUMAB
     Indication: Pancreatic neuroendocrine tumour
     Route: 065
  8. NIVOLUMAB [Suspect]
     Active Substance: NIVOLUMAB
     Indication: Pancreatic neuroendocrine tumour
     Route: 065
  9. LAROTRECTINIB [Suspect]
     Active Substance: LAROTRECTINIB
     Indication: Pancreatic neuroendocrine tumour
     Route: 065
  10. REPOTRECTINIB [Suspect]
     Active Substance: REPOTRECTINIB
     Indication: Pancreatic neuroendocrine tumour
     Dosage: 160 MILLIGRAM, ONCE A DAY (FOR TWO WEEKS)
     Route: 065
     Dates: start: 202203
  11. REPOTRECTINIB [Suspect]
     Active Substance: REPOTRECTINIB
     Dosage: 160 MILLIGRAM, TWO TIMES A DAY
     Route: 065
  12. SELITRECTINIB [Suspect]
     Active Substance: SELITRECTINIB
     Indication: Pancreatic neuroendocrine tumour
     Route: 065

REACTIONS (6)
  - Pulmonary embolism [Unknown]
  - Neuropathy peripheral [Unknown]
  - Fatigue [Unknown]
  - Nasopharyngitis [Unknown]
  - Nausea [Unknown]
  - Rash [Unknown]
